FAERS Safety Report 6317409-1 (Version None)
Quarter: 2009Q3

REPORT INFORMATION
  Report Type: 
  Country: None (occurrence: None)
  Receive Date: 20090820
  Receipt Date: 20090820
  Transmission Date: 20100115
  Serious: No
  Sender: FDA-Public Use
  Company Number: None

PATIENT
  Age: 82 Year
  Sex: Female

DRUGS (2)
  1. MACROBID [Suspect]
     Indication: URINARY TRACT INFECTION
     Dosage: ONE 2X DAILY ORAL
     Route: 048
     Dates: start: 20090610
  2. KEFLEX [Suspect]
     Indication: DYSURIA
     Dosage: ONE 2X DAILY ORAL
     Route: 048
     Dates: start: 20090610

REACTIONS (8)
  - ERYTHEMA [None]
  - MALAISE [None]
  - PAIN [None]
  - QUALITY OF LIFE DECREASED [None]
  - SUNBURN [None]
  - VAGINAL DISORDER [None]
  - VULVAL DISORDER [None]
  - VULVOVAGINAL PRURITUS [None]
